FAERS Safety Report 13637763 (Version 1)
Quarter: 2017Q2

REPORT INFORMATION
  Report Type: Spontaneous
  Country: CA (occurrence: CA)
  Receive Date: 20170609
  Receipt Date: 20170609
  Transmission Date: 20170830
  Serious: Yes (Other)
  Sender: FDA-Public Use
  Company Number: CA-PFIZER INC-2746681

PATIENT
  Age: 67 Year

DRUGS (4)
  1. FLUOROURACIL. [Suspect]
     Active Substance: FLUOROURACIL
     Dosage: NOT REPORTED
     Route: 065
  2. CALCIUM FOLINATE [Suspect]
     Active Substance: LEUCOVORIN CALCIUM
     Dosage: NOT REPORTED
     Route: 065
  3. AVASTIN [Suspect]
     Active Substance: BEVACIZUMAB
     Dosage: UNK
     Route: 065
  4. ELOXATIN [Suspect]
     Active Substance: OXALIPLATIN
     Dosage: UNK, CYCLIC
     Route: 065

REACTIONS (1)
  - Pulmonary embolism [Unknown]
